FAERS Safety Report 5139038-8 (Version None)
Quarter: 2006Q4

REPORT INFORMATION
  Report Type: 
  Country: None (occurrence: None)
  Receive Date: 20061030
  Receipt Date: 20060612
  Transmission Date: 20070319
  Serious: No
  Sender: FDA-Public Use
  Company Number: US-GLAXOSMITHKLINE-A0608629A

PATIENT
  Age: 70 Year
  Sex: Female

DRUGS (3)
  1. ADVAIR HFA [Suspect]
     Indication: EMPHYSEMA
     Route: 055
  2. UNSPECIFIED MEDICATION [Concomitant]
  3. LIPITOR [Concomitant]

REACTIONS (1)
  - DYSPHONIA [None]
